FAERS Safety Report 25839977 (Version 1)
Quarter: 2025Q3

REPORT INFORMATION
  Report Type: Spontaneous
  Country: US (occurrence: US)
  Receive Date: 20250924
  Receipt Date: 20250924
  Transmission Date: 20251020
  Serious: Yes (Other)
  Sender: STRIDES
  Company Number: US-STRIDES ARCOLAB LIMITED-2025SP008118

PATIENT
  Age: 30 Year
  Sex: Male

DRUGS (9)
  1. URSODIOL [Suspect]
     Active Substance: URSODIOL
     Indication: Cholestasis
     Route: 048
  2. SOYBEAN OIL [Concomitant]
     Active Substance: SOYBEAN OIL
     Indication: Parenteral nutrition
     Route: 051
  3. SOYBEAN OIL [Concomitant]
     Active Substance: SOYBEAN OIL
     Route: 065
  4. FLUOROURACIL [Concomitant]
     Active Substance: FLUOROURACIL
     Indication: Intestinal adenocarcinoma
     Route: 065
  5. FLUOROURACIL [Concomitant]
     Active Substance: FLUOROURACIL
     Indication: Metastases to peritoneum
  6. SODIUM CHLORIDE [Concomitant]
     Active Substance: SODIUM CHLORIDE
     Indication: Parenteral nutrition
     Route: 051
  7. DEXTROSE [Concomitant]
     Active Substance: DEXTROSE MONOHYDRATE
     Indication: Parenteral nutrition
     Route: 051
  8. AMINO ACIDS, SOURCE UNSPECIFIED [Concomitant]
     Active Substance: AMINO ACIDS, SOURCE UNSPECIFIED
     Indication: Parenteral nutrition
     Route: 051
  9. OPIUM [Concomitant]
     Active Substance: OPIUM
     Indication: Short-bowel syndrome
     Route: 065

REACTIONS (1)
  - Drug ineffective for unapproved indication [Unknown]
